FAERS Safety Report 17427363 (Version 1)
Quarter: 2020Q1

REPORT INFORMATION
  Report Type: Spontaneous
  Country: US (occurrence: US)
  Receive Date: 20200217
  Receipt Date: 20200217
  Transmission Date: 20200409
  Serious: No
  Sender: FDA-Public Use
  Company Number: US-FRESENIUS KABI-FK202001447

PATIENT
  Age: 62 Year
  Sex: Female

DRUGS (1)
  1. OXYTOCIN INJECTION, USP [Suspect]
     Active Substance: OXYTOCIN
     Indication: HORMONE THERAPY
     Dosage: 1 ML
     Route: 030
     Dates: start: 20200205

REACTIONS (2)
  - Drug ineffective [Unknown]
  - Pain [Unknown]

NARRATIVE: CASE EVENT DATE: 20200205
